FAERS Safety Report 8566013 (Version 4)
Quarter: 2015Q1

REPORT INFORMATION
  Report Type: Spontaneous
  Country: US (occurrence: US)
  Receive Date: 20120516
  Receipt Date: 20150212
  Transmission Date: 20150721
  Serious: Yes (Disabling)
  Sender: FDA-Public Use
  Company Number: US-MERCK-1205USA01845

PATIENT
  Sex: Male
  Weight: 87.98 kg

DRUGS (1)
  1. PROPECIA [Suspect]
     Active Substance: FINASTERIDE
     Indication: ALOPECIA
     Dosage: 1 MG, QD
     Route: 048
     Dates: start: 20080721, end: 20120103

REACTIONS (16)
  - Anxiety [Not Recovered/Not Resolved]
  - Haemorrhoids [Unknown]
  - Organic erectile dysfunction [Not Recovered/Not Resolved]
  - Ejaculation failure [Not Recovered/Not Resolved]
  - Mental disorder [Unknown]
  - Drug ineffective [Unknown]
  - Dermal cyst [Unknown]
  - Cognitive disorder [Not Recovered/Not Resolved]
  - Penis disorder [Unknown]
  - Angiopathy [Unknown]
  - Sexual dysfunction [Not Recovered/Not Resolved]
  - Libido decreased [Not Recovered/Not Resolved]
  - Urethral stenosis [Unknown]
  - Ejaculation disorder [Not Recovered/Not Resolved]
  - Depression [Unknown]
  - Skin lesion [Unknown]

NARRATIVE: CASE EVENT DATE: 2008
